FAERS Safety Report 23824415 (Version 1)
Quarter: 2024Q2

REPORT INFORMATION
  Report Type: Spontaneous
  Country: US (occurrence: US)
  Receive Date: 20240507
  Receipt Date: 20240507
  Transmission Date: 20240715
  Serious: Yes (Other)
  Sender: FDA-Public Use
  Company Number: US-ABBVIE-5747300

PATIENT
  Sex: Female

DRUGS (1)
  1. REFRESH LACRI-LUBE [Suspect]
     Active Substance: MINERAL OIL\PETROLATUM
     Indication: Product used for unknown indication
     Route: 047

REACTIONS (3)
  - Brain operation [Unknown]
  - Bell^s palsy [Unknown]
  - Eyelid function disorder [Unknown]

NARRATIVE: CASE EVENT DATE: 20210101
